FAERS Safety Report 5945301-0 (Version None)
Quarter: 2008Q4

REPORT INFORMATION
  Report Type: 
  Country: None (occurrence: None)
  Receive Date: 20081107
  Receipt Date: 20081028
  Transmission Date: 20090506
  Serious: Yes (Other)
  Sender: FDA-Public Use
  Company Number: FI-ROCHE-583929

PATIENT
  Age: 68 Year
  Sex: Female

DRUGS (10)
  1. BONIVA [Suspect]
     Indication: OSTEOPOROSIS
     Route: 048
     Dates: start: 20070531, end: 20080731
  2. FOSAMAX [Concomitant]
     Dates: start: 20020512, end: 20070501
  3. PREDNISONE TAB [Concomitant]
     Dosage: DOSAGE REGIMEN: 7.5 MGX1
     Route: 048
  4. MEDROL [Concomitant]
     Dosage: DOSAGE REGIMEN: 16 MGX2 AND 1/14 D
     Route: 048
     Dates: start: 20080501, end: 20080501
  5. MEDROL [Concomitant]
     Dosage: DOSAGE REGIMEN: 16 MGX2 AND 1/14 D
     Route: 048
     Dates: start: 20080801, end: 20080801
  6. SPIRIVA [Concomitant]
  7. CORTICOSTEROIDS [Concomitant]
     Route: 048
     Dates: start: 19930101
  8. SERETIDE [Concomitant]
  9. ATROVENT COMP [Concomitant]
  10. FOSAVANCE [Concomitant]

REACTIONS (5)
  - APTYALISM [None]
  - BACTERIAL INFECTION [None]
  - DENTAL CARIES [None]
  - MEDICAL DEVICE PAIN [None]
  - OSTEONECROSIS [None]
